FAERS Safety Report 7811673-5 (Version None)
Quarter: 2011Q4

REPORT INFORMATION
  Report Type: 
  Country: None (occurrence: None)
  Receive Date: 20111013
  Receipt Date: 20111010
  Transmission Date: 20120403
  Serious: Yes (Hospitalization, Other)
  Sender: FDA-Public Use
  Company Number: US-TEVA-304511USA

PATIENT
  Age: 58 Year
  Sex: Male

DRUGS (2)
  1. KETAMINE HCL [Interacting]
     Route: 042
  2. GABAPENTIN [Suspect]
     Indication: PAIN
     Dosage: 2700 MILLIGRAM;

REACTIONS (2)
  - DRUG INTERACTION [None]
  - DEPRESSED LEVEL OF CONSCIOUSNESS [None]
